FAERS Safety Report 7518459-X (Version None)
Quarter: 2011Q2

REPORT INFORMATION
  Report Type: 
  Country: None (occurrence: None)
  Receive Date: 20110601
  Receipt Date: 20110601
  Transmission Date: 20111010
  Serious: Yes (Hospitalization)
  Sender: FDA-Public Use
  Company Number: None

PATIENT
  Age: 55 Year
  Sex: Male
  Weight: 78.0187 kg

DRUGS (1)
  1. METFORMIN HCL [Suspect]
     Indication: TYPE 2 DIABETES MELLITUS
     Dosage: 2X500MG TWICE DAILY PO
     Route: 048
     Dates: start: 20091224, end: 20110527

REACTIONS (3)
  - NAUSEA [None]
  - DIARRHOEA [None]
  - DIZZINESS [None]
